FAERS Safety Report 6968454-4 (Version None)
Quarter: 2010Q3

REPORT INFORMATION
  Report Type: 
  Country: None (occurrence: None)
  Receive Date: 20100907
  Receipt Date: 20100826
  Transmission Date: 20110219
  Serious: Yes (Hospitalization, Other)
  Sender: FDA-Public Use
  Company Number: PHHY2010FR57107

PATIENT
  Sex: Male

DRUGS (2)
  1. LEPONEX [Suspect]
     Dosage: 01 DF QD
     Dates: start: 20100514, end: 20100614
  2. LEPTICUR [Suspect]
     Dosage: 01 DF QD
     Dates: start: 20100514, end: 20100614

REACTIONS (9)
  - COAGULOPATHY [None]
  - COLITIS [None]
  - DIARRHOEA [None]
  - HYPOVOLAEMIC SHOCK [None]
  - INFLAMMATION [None]
  - LARGE INTESTINAL ULCER [None]
  - NECROTISING COLITIS [None]
  - SEPTIC SHOCK [None]
  - VOMITING [None]
